FAERS Safety Report 13712724 (Version 1)
Quarter: 2017Q3

REPORT INFORMATION
  Report Type: Not Available
  Country: US (occurrence: US)
  Receive Date: 20170703
  Receipt Date: 20170703
  Transmission Date: 20171127
  Serious: Yes (Other)
  Sender: FDA-Public Use
  Company Number: US-ANIPHARMA-2017-US-007525

PATIENT
  Age: 33 Year
  Sex: Female

DRUGS (2)
  1. VANCOMYCIN HYDROCHLORIDE (NON-SPECIFIC) [Suspect]
     Active Substance: VANCOMYCIN HYDROCHLORIDE
  2. SULFASALAZINE. [Suspect]
     Active Substance: SULFASALAZINE
     Dosage: USED DAILY

REACTIONS (1)
  - Drug reaction with eosinophilia and systemic symptoms [Unknown]
